FAERS Safety Report 23692306 (Version 1)
Quarter: 2024Q2

REPORT INFORMATION
  Report Type: Spontaneous
  Country: GB (occurrence: GB)
  Receive Date: 20240401
  Receipt Date: 20240401
  Transmission Date: 20240715
  Serious: Yes (Other)
  Sender: FDA-Public Use
  Company Number: None

PATIENT
  Age: 9 Year
  Sex: Female
  Weight: 16 kg

DRUGS (4)
  1. CLARITHROMYCIN [Suspect]
     Active Substance: CLARITHROMYCIN
     Dosage: 250 MG/5 ML. TAKE ONE AND A HALF 5ML SPOONFULS (7.5ML) TWICE, ORAL SUSPENSION
     Route: 065
     Dates: start: 20240207
  2. CLARITHROMYCIN [Suspect]
     Active Substance: CLARITHROMYCIN
     Indication: Product used for unknown indication
     Dosage: UNK
     Route: 065
     Dates: start: 20240320
  3. AMOXICILLIN [Concomitant]
     Active Substance: AMOXICILLIN
     Indication: Ill-defined disorder
     Dosage: 2X5ML SPOON 3 TIMES/DAY FOR 5 DAYS
     Route: 065
     Dates: start: 20240208, end: 20240213
  4. CLARITHROMYCIN [Concomitant]
     Active Substance: CLARITHROMYCIN
     Indication: Ill-defined disorder
     Dosage: TAKE ONE AND A HALF 5ML SPOONFULS (7.5ML) TWICE...
     Route: 065
     Dates: start: 20240207, end: 20240212

REACTIONS (3)
  - Swelling face [Recovered/Resolved]
  - Rash [Unknown]
  - Malaise [Unknown]
